FAERS Safety Report 16910936 (Version 1)
Quarter: 2019Q4

REPORT INFORMATION
  Report Type: Report from Study
  Country: EC (occurrence: EC)
  Receive Date: 20191012
  Receipt Date: 20191012
  Transmission Date: 20200122
  Serious: Yes (Other)
  Sender: FDA-Public Use
  Company Number: PHHY2019EC228159

PATIENT
  Age: 74 Year
  Sex: Female

DRUGS (1)
  1. SANDOSTATIN LAR DEPOT [Suspect]
     Active Substance: OCTREOTIDE ACETATE
     Indication: ACROMEGALY
     Dosage: 20 MG, QMO
     Route: 030
     Dates: start: 20170823

REACTIONS (3)
  - Pancreatitis [Unknown]
  - Second primary malignancy [Unknown]
  - Breast cancer [Unknown]

NARRATIVE: CASE EVENT DATE: 201909
